FAERS Safety Report 18156856 (Version 1)
Quarter: 2020Q3

REPORT INFORMATION
  Report Type: Spontaneous
  Country: US (occurrence: US)
  Receive Date: 20200817
  Receipt Date: 20200817
  Transmission Date: 20201103
  Serious: No
  Sender: FDA-Public Use
  Company Number: None

PATIENT
  Age: 78 Year
  Sex: Male

DRUGS (17)
  1. RAYALDEE [Suspect]
     Active Substance: CALCIFEDIOL
     Indication: SECONDARY HYPERTHYROIDISM
     Route: 048
     Dates: start: 20200602
  2. GEMFIBRAZOL [Concomitant]
  3. POTASSIUM [Concomitant]
     Active Substance: POTASSIUM
  4. RAMEXA [Concomitant]
  5. URSODIOL. [Concomitant]
     Active Substance: URSODIOL
  6. ISOSORBIDE MON [Concomitant]
  7. HYDRALAZINE [Concomitant]
     Active Substance: HYDRALAZINE HYDROCHLORIDE
  8. TAMSULOSIN [Concomitant]
     Active Substance: TAMSULOSIN
  9. GLIMEPRIMIDE [Concomitant]
  10. GABAPENTIN. [Concomitant]
     Active Substance: GABAPENTIN
  11. BROVANA [Concomitant]
     Active Substance: ARFORMOTEROL TARTRATE
  12. AMLODIPINE [Concomitant]
     Active Substance: AMLODIPINE BESYLATE
  13. MONTELUKAST [Concomitant]
     Active Substance: MONTELUKAST SODIUM
  14. PLAVIX [Concomitant]
     Active Substance: CLOPIDOGREL BISULFATE
  15. ATORVASTATIN [Concomitant]
     Active Substance: ATORVASTATIN
  16. FINASTERIDE. [Concomitant]
     Active Substance: FINASTERIDE
  17. METOPROLOL TARTRATE. [Concomitant]
     Active Substance: METOPROLOL TARTRATE

REACTIONS (2)
  - Fatigue [None]
  - Asthenia [None]

NARRATIVE: CASE EVENT DATE: 20200817
